FAERS Safety Report 16274622 (Version 1)
Quarter: 2019Q2

REPORT INFORMATION
  Report Type: Report from Study
  Country: NO (occurrence: NO)
  Receive Date: 20190506
  Receipt Date: 20190506
  Transmission Date: 20190711
  Serious: Yes (Death)
  Sender: FDA-Public Use
  Company Number: NO-ROCHE-2312030

PATIENT

DRUGS (1)
  1. TENECTEPLASE [Suspect]
     Active Substance: TENECTEPLASE
     Indication: ISCHAEMIC STROKE
     Dosage: MAXIMUM OF 40 KG
     Route: 040

REACTIONS (3)
  - Haemoglobin decreased [Fatal]
  - Renal failure [Fatal]
  - Pneumonia [Fatal]
